FAERS Safety Report 6554700-8 (Version None)
Quarter: 2010Q1

REPORT INFORMATION
  Report Type: 
  Country: None (occurrence: None)
  Receive Date: 20100127
  Receipt Date: 20100117
  Transmission Date: 20100710
  Serious: Yes (Hospitalization)
  Sender: FDA-Public Use
  Company Number: US-JNJCH-2010002144

PATIENT
  Age: 58 Year
  Sex: Female
  Weight: 83.9 kg

DRUGS (2)
  1. ROLAIDS EXTRA STRENGTH FRESHMINT [Suspect]
     Indication: DYSPEPSIA
     Dosage: TEXT:2 TABLETS 4 TIMES DAILY
     Route: 048
  2. TYLENOL [Suspect]
     Indication: HEADACHE
     Dosage: TEXT:2 CAPLETS EVERY 6 HOURS
     Route: 065

REACTIONS (15)
  - ABDOMINAL DISTENSION [None]
  - CHEST PAIN [None]
  - DIARRHOEA [None]
  - DRUG INEFFECTIVE [None]
  - DYSPEPSIA [None]
  - GASTROINTESTINAL DISORDER [None]
  - GASTROINTESTINAL INFECTION [None]
  - GASTROINTESTINAL INFLAMMATION [None]
  - LOSS OF CONSCIOUSNESS [None]
  - OESOPHAGEAL DISORDER [None]
  - OESOPHAGEAL INFECTION [None]
  - PRODUCT ODOUR ABNORMAL [None]
  - PRODUCT QUALITY ISSUE [None]
  - PRODUCT TASTE ABNORMAL [None]
  - VOMITING [None]
